FAERS Safety Report 7125265-7 (Version None)
Quarter: 2010Q4

REPORT INFORMATION
  Report Type: 
  Country: None (occurrence: None)
  Receive Date: 20101112
  Receipt Date: 20101028
  Transmission Date: 20110411
  Serious: Yes (Other)
  Sender: FDA-Public Use
  Company Number: AT-GDP-10409245

PATIENT

DRUGS (1)
  1. DIFFERIN [Suspect]
     Dosage: 1 DF QOD TRANSPLACENTAL
     Route: 064
     Dates: start: 20091201, end: 20100201

REACTIONS (3)
  - ABORTION INDUCED [None]
  - DANDY-WALKER SYNDROME [None]
  - MATERNAL DRUGS AFFECTING FOETUS [None]
